FAERS Safety Report 20068935 (Version 1)
Quarter: 2021Q4

REPORT INFORMATION
  Report Type: Spontaneous
  Country: CA (occurrence: CA)
  Receive Date: 20211115
  Receipt Date: 20211115
  Transmission Date: 20220303
  Serious: Yes (Other)
  Sender: FDA-Public Use
  Company Number: CA-SAMSUNG BIOEPIS-SB-2021-26107

PATIENT
  Age: 75 Year
  Sex: Male

DRUGS (1)
  1. INFLIXIMAB [Suspect]
     Active Substance: INFLIXIMAB
     Indication: Crohn^s disease
     Route: 042

REACTIONS (5)
  - Macular degeneration [Recovered/Resolved]
  - Corneal abrasion [Recovered/Resolved]
  - Retinal detachment [Recovered/Resolved]
  - Faecal calprotectin increased [Recovered/Resolved]
  - Off label use [Recovered/Resolved]
